FAERS Safety Report 10410619 (Version 2)
Quarter: 2014Q3

REPORT INFORMATION
  Report Type: Spontaneous
  Country: FR (occurrence: FR)
  Receive Date: 20140826
  Receipt Date: 20140923
  Transmission Date: 20150326
  Serious: Yes (Death, Life-Threatening, Hospitalization)
  Sender: FDA-Public Use
  Company Number: FR-PFIZER INC-2014236801

PATIENT
  Age: 86 Year
  Sex: Female

DRUGS (9)
  1. AMIODARONE HCL [Interacting]
     Active Substance: AMIODARONE HYDROCHLORIDE
     Dosage: 1200 MG, UNK
     Route: 048
     Dates: start: 20140724, end: 20140724
  2. AMIODARONE HCL [Suspect]
     Active Substance: AMIODARONE HYDROCHLORIDE
     Dosage: UNK
     Route: 048
     Dates: start: 2013
  3. LEVOTHYROX [Concomitant]
     Active Substance: LEVOTHYROXINE
     Dosage: UNK
  4. FLECAINE LP [Interacting]
     Active Substance: FLECAINIDE
     Dosage: 50 MG, DAILY
     Route: 048
     Dates: start: 20140726
  5. CRESTOR [Concomitant]
     Active Substance: ROSUVASTATIN CALCIUM
     Dosage: UNK
  6. ZYLORIC [Concomitant]
     Active Substance: ALLOPURINOL
     Dosage: UNK
  7. OGAST [Concomitant]
     Active Substance: LANSOPRAZOLE
     Dosage: UNK
  8. XARELTO [Concomitant]
     Active Substance: RIVAROXABAN
     Dosage: UNK
  9. AMIODARONE HCL [Interacting]
     Active Substance: AMIODARONE HYDROCHLORIDE
     Dosage: 400 MG, DAILY
     Dates: start: 20140725

REACTIONS (8)
  - Depressed level of consciousness [Not Recovered/Not Resolved]
  - Metabolic acidosis [Recovered/Resolved]
  - Electrocardiogram QRS complex prolonged [Fatal]
  - Drug interaction [Fatal]
  - Cardiac arrest [Fatal]
  - Hepatorenal failure [Fatal]
  - Hyperkalaemia [Not Recovered/Not Resolved]
  - Multi-organ failure [Fatal]

NARRATIVE: CASE EVENT DATE: 20140728
